FAERS Safety Report 8888266 (Version 3)
Quarter: 2013Q1

REPORT INFORMATION
  Report Type: Spontaneous
  Country: US (occurrence: US)
  Receive Date: 20121106
  Receipt Date: 20130111
  Transmission Date: 20140127
  Serious: Yes (Other)
  Sender: FDA-Public Use
  Company Number: US-PFIZER INC-2012274545

PATIENT
  Age: 62 Year
  Sex: Female
  Weight: 68.03 kg

DRUGS (7)
  1. ENBREL [Suspect]
     Indication: RHEUMATOID ARTHRITIS
     Dosage: UNK
  2. LYRICA [Suspect]
     Dosage: 50 MG X 90
  3. LEVOTHYROXINE [Concomitant]
     Indication: HYPOTHYROIDISM
     Dosage: UNK
  4. REMICADE [Concomitant]
     Indication: RHEUMATOID ARTHRITIS
     Dosage: EVERY SIX WEEKS
     Route: 042
  5. NASONEX [Concomitant]
     Dosage: UNK
  6. FLUTICASONE PROPIONATE [Concomitant]
     Dosage: UNK
  7. DICLOFENAC SODIUM [Concomitant]
     Indication: OSTEOARTHRITIS
     Dosage: 50 MG, BID

REACTIONS (5)
  - Ankle operation [Unknown]
  - Spinal disorder [Unknown]
  - Insomnia [Unknown]
  - Drug ineffective [Unknown]
  - Neuralgia [Not Recovered/Not Resolved]
